FAERS Safety Report 11087644 (Version 1)
Quarter: 2015Q2

REPORT INFORMATION
  Report Type: Spontaneous
  Country: CA (occurrence: None)
  Receive Date: 20150430
  Receipt Date: 20150430
  Transmission Date: 20150821
  Serious: Yes (Other)
  Sender: FDA-Public Use
  Company Number: 2837258

PATIENT
  Age: 49 Year
  Sex: Female

DRUGS (7)
  1. ADVIL [Concomitant]
     Active Substance: IBUPROFEN
  2. RANITIDINE [Concomitant]
     Active Substance: RANITIDINE\RANITIDINE HYDROCHLORIDE
  3. CAPECITABINE. [Suspect]
     Active Substance: CAPECITABINE
     Indication: PRODUCT USED FOR UNKNOWN INDICATION
  4. FASLODEX [Concomitant]
     Active Substance: FULVESTRANT
  5. AFINITOR [Suspect]
     Active Substance: EVEROLIMUS
     Indication: BREAST CANCER METASTATIC
     Dosage: 5 MG MILLIGRAM(S), 1 DAY
     Route: 048
  6. ZOMETA [Suspect]
     Active Substance: ZOLEDRONIC ACID
     Indication: BREAST CANCER METASTATIC
     Dosage: 4 MG MILLIGRAM(S), 1 WEEK
     Route: 042
  7. ZOLEDRONIC ACID [Suspect]
     Active Substance: ZOLEDRONIC ACID
     Indication: PRODUCT USED FOR UNKNOWN INDICATION

REACTIONS (49)
  - Blood cholesterol increased [None]
  - Incontinence [None]
  - Swelling [None]
  - Abdominal pain upper [None]
  - Chest pain [None]
  - Chills [None]
  - Fatigue [None]
  - Malaise [None]
  - Hepatic function abnormal [None]
  - Migraine [None]
  - Road traffic accident [None]
  - Asthenia [None]
  - Bone pain [None]
  - Nausea [None]
  - Paraesthesia [None]
  - Platelet count decreased [None]
  - Blood potassium increased [None]
  - Post-traumatic neck syndrome [None]
  - Infusion site coldness [None]
  - Dizziness [None]
  - Feeling hot [None]
  - Flushing [None]
  - Pain in extremity [None]
  - Abdominal distension [None]
  - Body temperature decreased [None]
  - Contusion [None]
  - Fear [None]
  - Impaired healing [None]
  - Arthralgia [None]
  - Dehydration [None]
  - Feeling cold [None]
  - Headache [None]
  - Injection site erythema [None]
  - Neutrophil count decreased [None]
  - Pain [None]
  - Urticaria [None]
  - Blood pressure decreased [None]
  - Influenza like illness [None]
  - Gamma-glutamyltransferase decreased [None]
  - Anxiety [None]
  - Oedema peripheral [None]
  - Abdominal discomfort [None]
  - Retinal detachment [None]
  - Back pain [None]
  - Mean cell haemoglobin decreased [None]
  - Pain in jaw [None]
  - Peripheral coldness [None]
  - Toothache [None]
  - Drug ineffective [None]
